FAERS Safety Report 7803596-2 (Version None)
Quarter: 2011Q4

REPORT INFORMATION
  Report Type: 
  Country: None (occurrence: None)
  Receive Date: 20111009
  Receipt Date: 20111003
  Transmission Date: 20120403
  Serious: Yes (Hospitalization)
  Sender: FDA-Public Use
  Company Number: US-BRISTOL-MYERS SQUIBB COMPANY-16092892

PATIENT
  Age: 13 Year
  Sex: Male

DRUGS (2)
  1. ABILIFY [Suspect]
     Indication: BIPOLAR DISORDER
     Route: 048
  2. CONCERTA [Suspect]
     Dosage: AT 4 AM
     Route: 048

REACTIONS (3)
  - SUICIDE ATTEMPT [None]
  - HYPOXIC-ISCHAEMIC ENCEPHALOPATHY [None]
  - AGITATION [None]
